FAERS Safety Report 8310157-8 (Version None)
Quarter: 2012Q2

REPORT INFORMATION
  Report Type: 
  Country: None (occurrence: None)
  Receive Date: 20120425
  Receipt Date: 20120417
  Transmission Date: 20120825
  Serious: Yes (Other)
  Sender: FDA-Public Use
  Company Number: TR-ROXANE LABORATORIES, INC.-2012-RO-01074RO

PATIENT
  Age: 53 Year
  Sex: Female

DRUGS (4)
  1. GRANISETRON HCL [Suspect]
     Indication: PROPHYLAXIS OF NAUSEA AND VOMITING
     Dosage: 1 MG
  2. DOCETAXEL [Suspect]
     Indication: BREAST CANCER
  3. DOXORUBICIN HCL [Suspect]
     Indication: BREAST CANCER
  4. FLUOROURACIL [Suspect]
     Indication: BREAST CANCER

REACTIONS (2)
  - ORGASM ABNORMAL [None]
  - LIBIDO INCREASED [None]
